FAERS Safety Report 22313202 (Version 1)
Quarter: 2023Q2

REPORT INFORMATION
  Report Type: Spontaneous
  Country: CN (occurrence: CN)
  Receive Date: 20230512
  Receipt Date: 20230512
  Transmission Date: 20230721
  Serious: Yes (Other)
  Sender: FDA-Public Use
  Company Number: CN-002147023-NVSC2023CN106050

PATIENT
  Age: 49 Year
  Sex: Male

DRUGS (1)
  1. ENTRESTO [Suspect]
     Active Substance: SACUBITRIL\VALSARTAN
     Indication: Hypertensive emergency
     Dosage: 100 MG, QD
     Route: 048
     Dates: start: 20230416, end: 20230416

REACTIONS (7)
  - Angioedema [Recovering/Resolving]
  - Facial pain [Recovering/Resolving]
  - Joint stiffness [Recovering/Resolving]
  - Swelling face [Recovering/Resolving]
  - Reduced facial expression [Recovering/Resolving]
  - Pain in jaw [Recovering/Resolving]
  - Product use in unapproved indication [Recovered/Resolved]

NARRATIVE: CASE EVENT DATE: 20230416
